FAERS Safety Report 21442300 (Version 6)
Quarter: 2023Q2

REPORT INFORMATION
  Report Type: Spontaneous
  Country: US (occurrence: US)
  Receive Date: 20221011
  Receipt Date: 20230420
  Transmission Date: 20230722
  Serious: Yes (Other)
  Sender: FDA-Public Use
  Company Number: US-HORIZON THERAPEUTICS-HZN-2022-007642

PATIENT

DRUGS (2)
  1. UPLIZNA [Suspect]
     Active Substance: INEBILIZUMAB-CDON
     Indication: Product used for unknown indication
     Dosage: FIRST DOSE (EVERY 6 MONTHS)
     Route: 042
     Dates: start: 202103
  2. UPLIZNA [Suspect]
     Active Substance: INEBILIZUMAB-CDON
     Dosage: 3RD DOSE (EVERY 6 MONTHS)
     Route: 042
     Dates: start: 2022

REACTIONS (7)
  - Therapeutic response shortened [Unknown]
  - Drug ineffective [Unknown]
  - Hypogammaglobulinaemia [Unknown]
  - Neuromyelitis optica spectrum disorder [Not Recovered/Not Resolved]
  - Condition aggravated [Not Recovered/Not Resolved]
  - Inappropriate schedule of product administration [Unknown]
  - Unevaluable event [Unknown]

NARRATIVE: CASE EVENT DATE: 20220801
